FAERS Safety Report 8067721-3 (Version None)
Quarter: 2012Q1

REPORT INFORMATION
  Report Type: 
  Country: None (occurrence: None)
  Receive Date: 20120124
  Receipt Date: 20120118
  Transmission Date: 20120608
  Serious: Yes (Other)
  Sender: FDA-Public Use
  Company Number: GB-PFIZER INC-K201100286

PATIENT
  Sex: Female

DRUGS (1)
  1. ALTACE [Suspect]
     Dosage: 10 MG, 1X/DAY
     Route: 048
     Dates: start: 20030501, end: 20110205

REACTIONS (5)
  - NIGHTMARE [None]
  - HEADACHE [None]
  - NAUSEA [None]
  - DIARRHOEA [None]
  - PALPITATIONS [None]
